FAERS Safety Report 10596473 (Version 1)
Quarter: 2014Q4

REPORT INFORMATION
  Report Type: Spontaneous
  Country: FR (occurrence: FR)
  Receive Date: 20141120
  Receipt Date: 20141120
  Transmission Date: 20150529
  Serious: Yes (Hospitalization, Other)
  Sender: FDA-Public Use
  Company Number: FR-PERRIGO-14FR011188

PATIENT
  Age: 14 Year
  Sex: Female
  Weight: 70 kg

DRUGS (1)
  1. ACETAMINOPHEN 650MG ER 544 [Suspect]
     Active Substance: ACETAMINOPHEN
     Indication: INTENTIONAL OVERDOSE
     Dosage: 15 G, SINGLE
     Route: 048

REACTIONS (4)
  - Acute kidney injury [Recovered/Resolved]
  - Anuria [Recovered/Resolved]
  - Overdose [Recovered/Resolved]
  - Acute hepatic failure [Recovered/Resolved]
